FAERS Safety Report 25479964 (Version 1)
Quarter: 2025Q2

REPORT INFORMATION
  Report Type: Spontaneous
  Country: CA (occurrence: CA)
  Receive Date: 20250625
  Receipt Date: 20250625
  Transmission Date: 20250716
  Serious: Yes (Hospitalization)
  Sender: MERCK SHARP & DOHME LLC
  Company Number: CA-009507513-2299867

PATIENT
  Age: 75 Year
  Sex: Female
  Weight: 58 kg

DRUGS (1)
  1. KEYTRUDA [Suspect]
     Active Substance: PEMBROLIZUMAB
     Indication: Breast cancer metastatic
     Dosage: DOSAGE FORM ALSO REPORTED AS SOLUTION INTRAVENOUS
     Route: 042

REACTIONS (6)
  - Asthenia [Recovered/Resolved]
  - Speech disorder [Recovered/Resolved]
  - Psychomotor skills impaired [Recovered/Resolved]
  - Headache [Recovered/Resolved]
  - Rash [Recovered/Resolved]
  - Encephalitis [Recovered/Resolved]
